FAERS Safety Report 12745307 (Version 1)
Quarter: 2016Q3

REPORT INFORMATION
  Report Type: Report from Study
  Country: US (occurrence: US)
  Receive Date: 20160915
  Receipt Date: 20160915
  Transmission Date: 20161109
  Serious: Yes (Hospitalization, Other)
  Sender: FDA-Public Use
  Company Number: US-ROCHE-785836

PATIENT
  Age: 56 Year
  Sex: Female
  Weight: 108.6 kg

DRUGS (2)
  1. BEVACIZUMAB [Suspect]
     Active Substance: BEVACIZUMAB
     Indication: OVARIAN NEOPLASM
     Dosage: CYCLE-28 DAYS-GIVEN OVER 30-90 MIN ON DAYS 1 AND 15, TOTAL DOSE:1130 MG, LAST DOSE:05 JAN 2010
     Route: 042
  2. TEMSIROLIMUS [Suspect]
     Active Substance: TEMSIROLIMUS
     Indication: NEOPLASM MALIGNANT
     Dosage: CYCLE-28 DAYS-GIVEN ON DAYS 1, 8, 15, 22, TOTAL DOSE:40 MG, LAST DOSE:12 JAN 2010
     Route: 042

REACTIONS (14)
  - Lymphocyte count decreased [Unknown]
  - Pyrexia [Unknown]
  - Platelet count decreased [Unknown]
  - Pyrexia [Unknown]
  - Platelet count decreased [Unknown]
  - Chills [Unknown]
  - Skin infection [Not Recovered/Not Resolved]
  - White blood cell count decreased [Unknown]
  - Blood bilirubin increased [Unknown]
  - Neutrophil count decreased [Unknown]
  - Skin infection [Unknown]
  - Hyponatraemia [Unknown]
  - White blood cell count decreased [Unknown]
  - Lymphocyte count decreased [Unknown]

NARRATIVE: CASE EVENT DATE: 20091110
